FAERS Safety Report 19137747 (Version 1)
Quarter: 2021Q2

REPORT INFORMATION
  Report Type: Report from Study
  Country: None (occurrence: IL)
  Receive Date: 20210415
  Receipt Date: 20210415
  Transmission Date: 20210717
  Serious: Yes (Hospitalization)
  Sender: FDA-Public Use
  Company Number: IL-ABBVIE-18K-082-2375619-00

PATIENT
  Age: 55 Year
  Sex: Female

DRUGS (1)
  1. HUMIRA [Suspect]
     Active Substance: ADALIMUMAB
     Indication: RHEUMATOID ARTHRITIS
     Route: 058
     Dates: start: 20180515, end: 20190408

REACTIONS (11)
  - Feeling abnormal [Unknown]
  - Muscle spasms [Unknown]
  - Device difficult to use [Unknown]
  - Arthralgia [Not Recovered/Not Resolved]
  - Heart rate irregular [Unknown]
  - Hypothermia [Unknown]
  - Liver function test abnormal [Not Recovered/Not Resolved]
  - Dizziness [Unknown]
  - Drug ineffective [Not Recovered/Not Resolved]
  - Device issue [Unknown]
  - Nausea [Unknown]

NARRATIVE: CASE EVENT DATE: 2018
